FAERS Safety Report 24067064 (Version 1)
Quarter: 2024Q3

REPORT INFORMATION
  Report Type: Spontaneous
  Country: US (occurrence: US)
  Receive Date: 20240709
  Receipt Date: 20240709
  Transmission Date: 20241016
  Serious: No
  Sender: ROCHE
  Company Number: US-ROCHE-10000011711

PATIENT
  Age: 35 Year
  Sex: Male

DRUGS (2)
  1. OCREVUS [Suspect]
     Active Substance: OCRELIZUMAB
     Indication: Multiple sclerosis
     Dosage: INITIAL DOSE: 600 MG INTRAVENOUS INFUSION, FOLLOWED 14 DAY LATER BY A SECOND 600 MG INTRAVENOUS
     Route: 042
     Dates: start: 20231207
  2. OCREVUS [Suspect]
     Active Substance: OCRELIZUMAB
     Dosage: INITIAL DOSE: 600 MG INTRAVENOUS INFUSION, FOLLOWED 14 DAY LATER BY A SECOND 600 MG INTRAVENOUS
     Route: 042
     Dates: start: 20231221

REACTIONS (2)
  - Off label use [Unknown]
  - B-lymphocyte count decreased [Unknown]

NARRATIVE: CASE EVENT DATE: 20231207
